FAERS Safety Report 5252400-8 (Version None)
Quarter: 2007Q1

REPORT INFORMATION
  Report Type: 
  Country: None (occurrence: None)
  Receive Date: 20070301
  Receipt Date: 20061115
  Transmission Date: 20070707
  Serious: No
  Sender: FDA-Public Use
  Company Number: US-BRISTOL-MYERS SQUIBB COMPANY-13580188

PATIENT
  Age: 60 Year
  Sex: Male

DRUGS (8)
  1. PACLITAXEL [Suspect]
     Dates: start: 20060928, end: 20060928
  2. OXYCONTIN [Concomitant]
  3. OXY-IR [Concomitant]
  4. COMPAZINE [Concomitant]
  5. AMBIEN [Concomitant]
  6. XANAX [Concomitant]
  7. MEGACE [Concomitant]
  8. TOPROL-XL [Concomitant]

REACTIONS (2)
  - BELLIGERENCE [None]
  - CONFUSIONAL STATE [None]
